FAERS Safety Report 19876690 (Version 1)
Quarter: 2021Q3

REPORT INFORMATION
  Report Type: Spontaneous
  Country: ES (occurrence: ES)
  Receive Date: 20210923
  Receipt Date: 20210923
  Transmission Date: 20211014
  Serious: Yes (Hospitalization, Other)
  Sender: FDA-Public Use
  Company Number: NVSC2021ES212101

PATIENT
  Age: 40 Year
  Sex: Male

DRUGS (4)
  1. TEGRETOL [Suspect]
     Active Substance: CARBAMAZEPINE
     Indication: EPILEPSY
     Dosage: UNK UNK, QD
     Route: 048
  2. KEPPRA [Suspect]
     Active Substance: LEVETIRACETAM
     Indication: EPILEPSY
  3. KEPPRA [Suspect]
     Active Substance: LEVETIRACETAM
     Indication: OFF LABEL USE
     Dosage: 250 MILLIGRAM, 3X/DAY (TID)
     Route: 048
     Dates: start: 2006
  4. SINTROM [Concomitant]
     Active Substance: ACENOCOUMAROL
     Indication: EMBOLISM
     Dosage: UNK
     Route: 065
     Dates: start: 2006

REACTIONS (4)
  - Off label use [Unknown]
  - Renal failure [Unknown]
  - Cerebral haemorrhage [Unknown]
  - Petit mal epilepsy [Not Recovered/Not Resolved]

NARRATIVE: CASE EVENT DATE: 2006
